FAERS Safety Report 6753168-6 (Version None)
Quarter: 2010Q2

REPORT INFORMATION
  Report Type: 
  Country: None (occurrence: None)
  Receive Date: 20100603
  Receipt Date: 20100527
  Transmission Date: 20101027
  Serious: Yes (Death, Life-Threatening, Hospitalization)
  Sender: FDA-Public Use
  Company Number: GB-NOVOPROD-308661

PATIENT
  Sex: Male
  Weight: 82 kg

DRUGS (5)
  1. LEVEMIR [Suspect]
     Indication: TYPE 2 DIABETES MELLITUS
     Dosage: 52 U, QD
     Route: 058
  2. BISOPROLOL [Concomitant]
     Indication: ANGINA PECTORIS
     Dosage: 1.25 MG, QD
     Route: 048
     Dates: start: 20080603
  3. ATORVASTATIN [Concomitant]
     Indication: HYPERCHOLESTEROLAEMIA
     Dosage: 20 MG, QD
     Route: 048
     Dates: start: 20080219
  4. ASPIRIN [Concomitant]
     Indication: DIABETES MELLITUS
     Dosage: 75 MG, QD
     Route: 048
     Dates: start: 20010830
  5. LANSOPRAZOLE [Concomitant]
     Indication: DYSPEPSIA
     Dosage: 15 MG, QD
     Route: 048
     Dates: start: 20011205, end: 20100202

REACTIONS (1)
  - CARDIAC ARREST [None]
